FAERS Safety Report 8127927-1 (Version None)
Quarter: 2012Q1

REPORT INFORMATION
  Report Type: 
  Country: None (occurrence: None)
  Receive Date: 20120210
  Receipt Date: 20120120
  Transmission Date: 20120608
  Serious: Yes (Hospitalization)
  Sender: FDA-Public Use
  Company Number: US-PFIZER INC-K200900463

PATIENT
  Age: 57 Year
  Sex: Female

DRUGS (9)
  1. LASIX [Suspect]
     Dosage: UNK
     Route: 048
     Dates: start: 20050101
  2. PAROXETINE [Suspect]
     Indication: DEPRESSION
     Dosage: UNK
     Dates: start: 20050101, end: 20070101
  3. POTASSIUM CHLORIDE [Suspect]
     Dosage: UNK
     Route: 048
     Dates: start: 20050101
  4. RAMIPRIL [Suspect]
     Dosage: UNK
     Route: 048
     Dates: start: 20050101
  5. ACETAMINOPHEN W/ PROPOXYPHENE HCL [Suspect]
     Dosage: UNK
     Route: 048
     Dates: start: 20050101
  6. FORADIL [Suspect]
     Indication: DEPRESSION
     Dosage: UNK
     Route: 055
     Dates: start: 20050101
  7. LEVOTHYROXINE SODIUM [Suspect]
     Dosage: UNK
     Route: 048
     Dates: start: 20050101
  8. XANAX [Suspect]
     Dosage: UNK
     Route: 048
     Dates: start: 20050101
  9. MEDIATOR [Suspect]
     Indication: DIABETES MELLITUS
     Dosage: 450 MG, 1X/DAY
     Route: 048
     Dates: start: 20030101, end: 20060101

REACTIONS (5)
  - TRICUSPID VALVE INCOMPETENCE [None]
  - MITRAL VALVE INCOMPETENCE [None]
  - PULMONARY ARTERIAL HYPERTENSION [None]
  - VENTRICULAR HYPOKINESIA [None]
  - EJECTION FRACTION DECREASED [None]
